FAERS Safety Report 5939348-8 (Version None)
Quarter: 2008Q4

REPORT INFORMATION
  Report Type: 
  Country: None (occurrence: None)
  Receive Date: 20081103
  Receipt Date: 20081030
  Transmission Date: 20090506
  Serious: Yes (Other)
  Sender: FDA-Public Use
  Company Number: KR-B.I. PHARMACEUTICALS,INC./RIDGEFIELD-2008-DE-05216BY

PATIENT
  Age: 76 Year
  Sex: Female

DRUGS (8)
  1. TELMISARTAN [Suspect]
     Indication: HYPERTENSION
     Route: 065
     Dates: start: 20070501
  2. ANTIDIABETICS [Concomitant]
     Indication: DIABETES MELLITUS
     Route: 065
  3. DRUGS FOR HYPERLIPIDAEMIA [Concomitant]
     Indication: HYPERLIPIDAEMIA
     Route: 065
  4. CANDESARTAN CILEXETIL [Concomitant]
     Indication: HYPERTENSION
     Route: 065
     Dates: start: 20050401
  5. TOPICAL STEROIDS [Concomitant]
     Indication: PEMPHIGUS
     Route: 065
  6. DRUGS FOR CARDIOVASCULAR DISEASES [Concomitant]
     Indication: CARDIOVASCULAR DISORDER
     Route: 065
  7. AZATHIOPRINE [Concomitant]
     Indication: PEMPHIGUS
     Dosage: 100MG
     Route: 065
     Dates: start: 20050601, end: 20051001
  8. ANTIHISTAMINE [Concomitant]
     Indication: PEMPHIGUS
     Route: 065
     Dates: start: 20050601, end: 20051001

REACTIONS (1)
  - PEMPHIGUS [None]
